FAERS Safety Report 8906172 (Version 1)
Quarter: 2012Q4

REPORT INFORMATION
  Report Type: Spontaneous
  Country: IR (occurrence: None)
  Receive Date: 20121109
  Receipt Date: 20121109
  Transmission Date: 20130627
  Serious: No
  Sender: FDA-Public Use
  Company Number: 2012P1063723

PATIENT
  Age: 73 Year
  Sex: Female

DRUGS (1)
  1. DIGOXIN [Suspect]
     Indication: CHRONIC HEART FAILURE

REACTIONS (8)
  - Nausea [None]
  - Vomiting [None]
  - Colour blindness acquired [None]
  - Abdominal pain [None]
  - Atrial fibrillation [None]
  - Cardioactive drug level increased [None]
  - Ventricular tachycardia [None]
  - Toxicity to various agents [None]
